FAERS Safety Report 5604638-5 (Version None)
Quarter: 2008Q1

REPORT INFORMATION
  Report Type: 
  Country: None (occurrence: None)
  Receive Date: 20080124
  Receipt Date: 20080124
  Transmission Date: 20080703
  Serious: Yes (Hospitalization, Disabling, Other)
  Sender: FDA-Public Use
  Company Number: None

PATIENT
  Age: 51 Year
  Sex: Male
  Weight: 94.8018 kg

DRUGS (4)
  1. EFFEXOR XR [Suspect]
     Indication: DEPRESSION
     Dosage: 1 DAILY BUCCAL
     Route: 002
     Dates: start: 20070124, end: 20070130
  2. SEROQUEL [Suspect]
     Indication: ANXIETY
     Dosage: 2 DAILY BUCCAL
     Route: 002
     Dates: start: 20070301, end: 20070403
  3. SEROQUEL [Suspect]
     Indication: BIPOLAR DISORDER
     Dosage: 2 DAILY BUCCAL
     Route: 002
     Dates: start: 20070301, end: 20070403
  4. SEROQUEL [Suspect]
     Indication: DEPRESSION
     Dosage: 2 DAILY BUCCAL
     Route: 002
     Dates: start: 20070301, end: 20070403

REACTIONS (15)
  - ANXIETY [None]
  - DEPRESSION [None]
  - DIARRHOEA [None]
  - DIZZINESS [None]
  - EYE PRURITUS [None]
  - FATIGUE [None]
  - FEELING COLD [None]
  - HEADACHE [None]
  - HYPERSOMNIA [None]
  - NAUSEA [None]
  - ORAL INTAKE REDUCED [None]
  - PRURITUS [None]
  - TONGUE DISORDER [None]
  - VISUAL ACUITY REDUCED [None]
  - VOMITING [None]
